FAERS Safety Report 6399673-6 (Version None)
Quarter: 2009Q4

REPORT INFORMATION
  Report Type: 
  Country: None (occurrence: None)
  Receive Date: 20091014
  Receipt Date: 20091006
  Transmission Date: 20100525
  Serious: Yes (Other)
  Sender: FDA-Public Use
  Company Number: CH-ROCHE-660797

PATIENT
  Sex: Female

DRUGS (2)
  1. TAMIFLU [Suspect]
     Dosage: FREQUENCY: 2 TAB/DAY
     Route: 048
     Dates: start: 20091001
  2. PREDNISONE [Concomitant]
     Indication: ANGIOEDEMA
     Dosage: FREQUENCY REPORTED AS DAY
     Route: 048
     Dates: start: 19890101

REACTIONS (1)
  - HALLUCINATION [None]
